FAERS Safety Report 5051494-2 (Version None)
Quarter: 2006Q3

REPORT INFORMATION
  Report Type: 
  Country: None (occurrence: None)
  Receive Date: 20060711
  Receipt Date: 20060706
  Transmission Date: 20061208
  Serious: Yes (Other)
  Sender: FDA-Public Use
  Company Number: S06-USA-02525-01

PATIENT
  Age: 43 Year
  Sex: Female

DRUGS (11)
  1. LEXAPRO [Suspect]
     Indication: STRESS
     Dosage: 10 MG QD; PO
     Route: 048
     Dates: start: 20060606
  2. LANTUS [Concomitant]
  3. HUMALOG [Concomitant]
  4. FEXOFENADINE [Concomitant]
  5. FUROSEMIDE [Concomitant]
  6. LISINOPRIL [Concomitant]
  7. LEVOTHYROXINE SODIUM [Concomitant]
  8. POTASSIUM [Concomitant]
  9. IRON [Concomitant]
  10. ASCORBIC ACID [Concomitant]
  11. ASPIRIN [Concomitant]

REACTIONS (1)
  - BLOOD GLUCOSE FLUCTUATION [None]
